FAERS Safety Report 7255833 (Version 2)
Quarter: 2013Q3

REPORT INFORMATION
  Report Type: Spontaneous
  Country: FR (occurrence: FR)
  Receive Date: 20100125
  Receipt Date: 20130701
  Transmission Date: 20140515
  Serious: Yes (Hospitalization)
  Sender: FDA-Public Use
  Company Number: PHHY2009FR59310

PATIENT
  Age: 81 Year
  Sex: Female

DRUGS (9)
  1. EXFORGE [Suspect]
     Dosage: 1 DF, QD
     Route: 048
     Dates: end: 20091105
  2. ZOMETA [Interacting]
     Indication: METASTASES TO BONE
     Dosage: 4 MG, BIW
     Route: 042
     Dates: start: 20091023, end: 20091105
  3. LASILIX [Interacting]
     Dosage: 1 DF, QD
     Route: 048
     Dates: end: 20091105
  4. GADOLINIUM [Interacting]
     Dosage: 0.071 DF, UNK
     Route: 042
     Dates: start: 20091022
  5. IODINE [Interacting]
     Dosage: UNK UKN, UNK
     Route: 042
     Dates: start: 20091023
  6. IBUPROFEN [Concomitant]
     Dosage: UNK UKN, UNK
     Route: 048
     Dates: start: 20091016, end: 20091020
  7. PRAVASTATINE [Concomitant]
     Dosage: UNK UKN, UNK
  8. STRONTIUM RANELATE [Concomitant]
     Dosage: UNK UKN, UNK
  9. PROFENID [Concomitant]
     Dosage: UNK UKN, UNK
     Route: 048
     Dates: start: 20091016, end: 20091020

REACTIONS (3)
  - Renal failure acute [Recovering/Resolving]
  - Renal failure [Recovering/Resolving]
  - Drug interaction [Unknown]
